FAERS Safety Report 13395016 (Version 2)
Quarter: 2017Q2

REPORT INFORMATION
  Report Type: Spontaneous
  Country: US (occurrence: US)
  Receive Date: 20170403
  Receipt Date: 20170411
  Transmission Date: 20170830
  Serious: Yes (Hospitalization, Other)
  Sender: FDA-Public Use
  Company Number: US-ALEXION-A201703119

PATIENT
  Sex: Female

DRUGS (1)
  1. SOLIRIS [Suspect]
     Active Substance: ECULIZUMAB
     Indication: PRODUCT USED FOR UNKNOWN INDICATION
     Dosage: UNK
     Route: 042

REACTIONS (9)
  - Oedema peripheral [Unknown]
  - Necrotising fasciitis [Unknown]
  - Skin warm [Unknown]
  - Local swelling [Unknown]
  - Pain [Unknown]
  - Fatigue [Unknown]
  - Pyrexia [Unknown]
  - Infection [Unknown]
  - Chills [Unknown]
